FAERS Safety Report 16357443 (Version 1)
Quarter: 2019Q2

REPORT INFORMATION
  Report Type: Spontaneous
  Country: CN (occurrence: CN)
  Receive Date: 20190527
  Receipt Date: 20190527
  Transmission Date: 20190711
  Serious: Yes (Other)
  Sender: FDA-Public Use
  Company Number: CN-DRREDDYS-GPV/CHN/19/0110308

PATIENT
  Age: 55 Year
  Sex: Male
  Weight: 75 kg

DRUGS (8)
  1. QIBITE [Concomitant]
     Indication: AFFECT LABILITY
     Route: 048
     Dates: start: 20190215, end: 20190224
  2. OLANZ (OLANZAPINE) [Suspect]
     Active Substance: OLANZAPINE
     Indication: AFFECT LABILITY
     Route: 048
     Dates: start: 20190215, end: 20190218
  3. JIAPULE [Concomitant]
     Indication: AFFECT LABILITY
     Route: 048
     Dates: start: 20190215, end: 20190224
  4. JIAPULE [Concomitant]
     Indication: BIPOLAR DISORDER
  5. LITHIUM CARBONATE. [Concomitant]
     Active Substance: LITHIUM CARBONATE
     Indication: BIPOLAR DISORDER
  6. LITHIUM CARBONATE. [Concomitant]
     Active Substance: LITHIUM CARBONATE
     Indication: MOOD SWINGS
     Route: 048
     Dates: start: 20190215, end: 20190224
  7. OLANZ (OLANZAPINE) [Suspect]
     Active Substance: OLANZAPINE
     Indication: BIPOLAR DISORDER
  8. QIBITE [Concomitant]
     Indication: BIPOLAR DISORDER

REACTIONS (2)
  - Hypotonia [Recovered/Resolved]
  - Loss of personal independence in daily activities [Recovered/Resolved]

NARRATIVE: CASE EVENT DATE: 20190218
